FAERS Safety Report 7003405-8 (Version None)
Quarter: 2010Q3

REPORT INFORMATION
  Report Type: 
  Country: None (occurrence: None)
  Receive Date: 20100920
  Receipt Date: 20100910
  Transmission Date: 20110219
  Serious: Yes (Hospitalization)
  Sender: FDA-Public Use
  Company Number: BE-ABBOTT-10P-013-0652783-00

PATIENT
  Sex: Male

DRUGS (10)
  1. HUMIRA [Suspect]
     Indication: CROHN'S DISEASE
     Route: 058
     Dates: start: 20080327, end: 20100106
  2. HUMIRA [Suspect]
     Route: 058
     Dates: start: 20100126
  3. QUESTRAN [Concomitant]
     Indication: DIARRHOEA
     Dates: start: 19990601
  4. SELENIUM-ACE [Concomitant]
     Indication: VITAMIN SUPPLEMENTATION
     Dates: start: 20010101
  5. OMEPRAZOLE [Concomitant]
     Indication: DYSPEPSIA
     Dates: start: 20010301
  6. MULTI-VITAMIN [Concomitant]
     Indication: VITAMIN SUPPLEMENTATION
  7. ASPIRIN [Concomitant]
     Indication: PROPHYLAXIS
     Dates: start: 20010101
  8. FERCAYL [Concomitant]
     Indication: MINERAL SUPPLEMENTATION
     Dates: start: 20060401
  9. NEUROBION [Concomitant]
     Indication: VITAMIN SUPPLEMENTATION
     Dates: end: 20080101
  10. OSTEOPLUS [Concomitant]
     Indication: JOINT STIFFNESS
     Dates: start: 20080101

REACTIONS (1)
  - SMALL INTESTINAL STENOSIS [None]
